FAERS Safety Report 20364504 (Version 2)
Quarter: 2022Q1

REPORT INFORMATION
  Report Type: Report from Study
  Country: TW (occurrence: TW)
  Receive Date: 20220122
  Receipt Date: 20220129
  Transmission Date: 20220423
  Serious: Yes (Hospitalization)
  Sender: FDA-Public Use
  Company Number: TW-AMGEN-TWNCT2022009421

PATIENT
  Age: 56 Year
  Sex: Male
  Weight: 57.8 kg

DRUGS (13)
  1. AMG-510 [Suspect]
     Active Substance: AMG-510
     Indication: K-ras gene mutation
     Dosage: 960 MILLIGRAM
     Route: 048
     Dates: start: 20210701
  2. AMG-510 [Suspect]
     Active Substance: AMG-510
     Indication: Pancreatic carcinoma
  3. ALPRAZOLAM [Concomitant]
     Active Substance: ALPRAZOLAM
     Dosage: 1, UNK
     Route: 048
     Dates: start: 20210718
  4. DIOVAN [Concomitant]
     Active Substance: VALSARTAN
     Dosage: 0.5, UNK
     Route: 048
     Dates: start: 20210802
  5. BISOPROLOL FUMARATE [Concomitant]
     Active Substance: BISOPROLOL FUMARATE
     Dosage: 1.25 MILLIGRAM
     Route: 048
     Dates: start: 20210802
  6. WEIMOK [Concomitant]
     Dosage: 20 MILLIGRAM
     Route: 048
     Dates: start: 20210730
  7. LIPITOR [Concomitant]
     Active Substance: ATORVASTATIN CALCIUM
     Dosage: 0.5, UNK
     Route: 048
     Dates: start: 20210830
  8. MAGNESIUM OXIDE [Concomitant]
     Active Substance: MAGNESIUM OXIDE
     Dosage: 1, UNK
     Route: 048
     Dates: start: 20210902
  9. ELIQUIS [Concomitant]
     Active Substance: APIXABAN
     Dosage: 1, UNK
     Route: 048
     Dates: start: 20211108
  10. PLAVIX [Concomitant]
     Active Substance: CLOPIDOGREL BISULFATE
     Dosage: 1, UNK
     Route: 048
     Dates: start: 20211108
  11. RABEPRAZOLE SODIUM [Concomitant]
     Active Substance: RABEPRAZOLE SODIUM
     Dosage: 20 MILLIGRAM
     Route: 048
     Dates: start: 20211111
  12. KASCOAL [Concomitant]
     Dosage: 1, UNK
     Route: 048
     Dates: start: 20210714
  13. COXINE [Concomitant]
     Dosage: 1, UNK
     Route: 048
     Dates: start: 20210711

REACTIONS (1)
  - Ileus [Recovered/Resolved]

NARRATIVE: CASE EVENT DATE: 20220119
